FAERS Safety Report 10388448 (Version 1)
Quarter: 2014Q3

REPORT INFORMATION
  Report Type: Report from Study
  Country: BR (occurrence: BR)
  Receive Date: 20140815
  Receipt Date: 20140815
  Transmission Date: 20150326
  Serious: Yes (Other)
  Sender: FDA-Public Use
  Company Number: PHHY2014BR101764

PATIENT
  Sex: Female

DRUGS (1)
  1. DIOVAN [Suspect]
     Active Substance: VALSARTAN

REACTIONS (6)
  - Bronchopneumonia [Unknown]
  - Bronchitis [Unknown]
  - Dysphonia [Unknown]
  - Increased bronchial secretion [Unknown]
  - Fatigue [Unknown]
  - Lung disorder [Unknown]
